FAERS Safety Report 7595130-X (Version None)
Quarter: 2011Q3

REPORT INFORMATION
  Report Type: 
  Country: None (occurrence: None)
  Receive Date: 20110707
  Receipt Date: 20110630
  Transmission Date: 20111222
  Serious: Yes (Other)
  Sender: FDA-Public Use
  Company Number: CO-GENENTECH-321039

PATIENT
  Sex: Male

DRUGS (1)
  1. PULMOZYME [Suspect]
     Indication: CYSTIC FIBROSIS
     Dosage: FREQUENCY: DAILY
     Route: 055
     Dates: start: 20010912

REACTIONS (2)
  - COUGH [None]
  - PYREXIA [None]
